FAERS Safety Report 9179397 (Version 1)
Quarter: 2012Q4

REPORT INFORMATION
  Report Type: 
  Country: US (occurrence: US)
  Receive Date: 20121029
  Receipt Date: 20121029
  Transmission Date: 20130627
  Serious: No
  Sender: FDA-Public Use
  Company Number: US-MYLANLABS-2012S1011334

PATIENT
  Age: 80 Year
  Sex: Male

DRUGS (1)
  1. ETOPOSIDE [Suspect]
     Route: 048

REACTIONS (4)
  - Accidental exposure to product [Not Recovered/Not Resolved]
  - Asthenia [Not Recovered/Not Resolved]
  - Dyspepsia [Not Recovered/Not Resolved]
  - Alopecia [Not Recovered/Not Resolved]
